FAERS Safety Report 5715671-7 (Version None)
Quarter: 2008Q2

REPORT INFORMATION
  Report Type: 
  Country: None (occurrence: None)
  Receive Date: 20080424
  Receipt Date: 20080421
  Transmission Date: 20081010
  Serious: Yes (Hospitalization)
  Sender: FDA-Public Use
  Company Number: FR-JNJFOC-20080405093

PATIENT
  Sex: Male

DRUGS (4)
  1. RISPERDAL [Suspect]
     Indication: PSYCHOTIC DISORDER
     Route: 048
     Dates: start: 20080313, end: 20080317
  2. ZYPREXA [Suspect]
     Indication: PSYCHOTIC DISORDER
     Route: 048
     Dates: start: 20080227, end: 20080313
  3. TERCIAN [Suspect]
     Indication: PSYCHOTIC DISORDER
     Route: 048
     Dates: start: 20080227, end: 20080317
  4. VALIUM [Concomitant]
     Indication: PSYCHOTIC DISORDER
     Route: 048

REACTIONS (2)
  - LEUKOPENIA [None]
  - NEUTROPENIA [None]
